FAERS Safety Report 10068188 (Version 2)
Quarter: 2014Q2

REPORT INFORMATION
  Report Type: Spontaneous
  Country: US (occurrence: US)
  Receive Date: 20140409
  Receipt Date: 20140513
  Transmission Date: 20141212
  Serious: Yes (Other)
  Sender: FDA-Public Use
  Company Number: US-PFIZER INC-2014096763

PATIENT
  Age: 59 Year
  Sex: Male
  Weight: 79.37 kg

DRUGS (18)
  1. CELEBREX [Suspect]
     Indication: MUSCULOSKELETAL DISCOMFORT
     Dosage: 200 MG, 2X/DAY
     Dates: start: 1995, end: 2000
  2. CELEBREX [Suspect]
     Indication: BACK DISORDER
     Dosage: 200 MG, DAILY
     Dates: start: 20010827
  3. ZOLOFT [Concomitant]
     Dosage: 50 MG, DAILY
     Route: 048
     Dates: start: 20010705, end: 20011003
  4. SOMA [Concomitant]
     Dosage: 350 MG, UNK (1 PO)
     Route: 048
     Dates: start: 20010705
  5. SOMA [Concomitant]
     Dosage: 1 PO X3
     Dates: start: 20010827
  6. LORTAB [Concomitant]
     Dosage: 40 MG, UNK (Q 4-6 PO)
     Route: 048
  7. ALLEGRA-D [Concomitant]
     Dosage: 1 DF, 2X/DAY (1DF Q 12 HRS)
     Dates: start: 20011114
  8. BEXTRA [Concomitant]
     Dosage: 10 MG, DAILY
  9. DEPAKOTE [Concomitant]
     Dosage: 1500 MG, DAILY (500MG 3QD)
  10. DILANTIN [Concomitant]
     Dosage: 400 MG, DAILY (100MG 4QHS)
  11. LIPITOR [Concomitant]
     Dosage: 10 MG, DAILY
  12. TOPROL XL [Concomitant]
     Dosage: 50 MG, DAILY
  13. IMDUR [Concomitant]
     Dosage: 30 MG, DAILY
  14. ASA [Concomitant]
     Dosage: 350 MG, DAILY
  15. ZANAFLEX [Concomitant]
     Indication: ABDOMINAL DISCOMFORT
     Dosage: UNK
     Dates: start: 20020510
  16. ULTRACET [Concomitant]
     Dosage: UNK
  17. ALBUTEROL [Concomitant]
     Dosage: 180 UG, 4X/DAY (90MCG, 2 PUFFS Q 6 HOURS)
     Dates: start: 20020612
  18. MECLIZINE [Concomitant]
     Dosage: 25 MG, 2X/DAY (1DF PO BID)
     Dates: start: 20020614

REACTIONS (4)
  - Cerebrovascular accident [Unknown]
  - Myocardial infarction [Unknown]
  - Convulsion [Unknown]
  - Gastrointestinal disorder [Unknown]
